FAERS Safety Report 5511239-6 (Version None)
Quarter: 2007Q4

REPORT INFORMATION
  Report Type: 
  Country: None (occurrence: None)
  Receive Date: 20071109
  Receipt Date: 20071029
  Transmission Date: 20080405
  Serious: Yes (Other)
  Sender: FDA-Public Use
  Company Number: BR-ROCHE-529584

PATIENT
  Age: 67 Year
  Sex: Male
  Weight: 70 kg

DRUGS (8)
  1. XENICAL [Suspect]
     Indication: BLOOD CHOLESTEROL DECREASED
     Route: 048
     Dates: start: 20070601
  2. LIPITOR [Concomitant]
     Route: 048
  3. ZETIA [Concomitant]
     Route: 048
  4. DIAMICRON [Concomitant]
     Route: 048
  5. GLIFAGE [Concomitant]
     Route: 048
  6. UNSPECIFIED DRUG [Concomitant]
     Indication: BLOOD PRESSURE
     Dosage: REPORTED AS UNSPECIFIED DRUG.
  7. CENTRUM [Concomitant]
     Indication: VITAMIN SUPPLEMENTATION
  8. UNSPECIFIED DRUG [Concomitant]
     Dosage: REPORTED AS: VITA SENIOR (VITAMINS, MINERALS, GINSENG).

REACTIONS (2)
  - BLOOD TRIGLYCERIDES INCREASED [None]
  - HAEMOGLOBIN DECREASED [None]
